FAERS Safety Report 12661914 (Version 1)
Quarter: 2016Q3

REPORT INFORMATION
  Report Type: Spontaneous
  Country: CA (occurrence: CA)
  Receive Date: 20160817
  Receipt Date: 20160817
  Transmission Date: 20161109
  Serious: Yes (Other)
  Sender: FDA-Public Use
  Company Number: PHHY2016CA110847

PATIENT
  Age: 33 Year
  Sex: Male

DRUGS (4)
  1. BICART//SODIUM BICARBONATE [Suspect]
     Active Substance: SODIUM BICARBONATE
     Indication: HAEMODIALYSIS
     Route: 010
  2. HEPARIN [Suspect]
     Active Substance: HEPARIN SODIUM
     Indication: ANTICOAGULANT THERAPY
     Route: 010
  3. SODIUM CHLORIDE INJ USP [Suspect]
     Active Substance: SODIUM CHLORIDE
     Indication: DEVICE PRIMING
     Route: 065
  4. BICARBONATE [Suspect]
     Active Substance: BICARBONATE ION
     Indication: HAEMODIALYSIS
     Route: 010

REACTIONS (1)
  - Neuropathy peripheral [Not Recovered/Not Resolved]
